FAERS Safety Report 5316868-0 (Version None)
Quarter: 2007Q2

REPORT INFORMATION
  Report Type: 
  Country: None (occurrence: None)
  Receive Date: 20070504
  Receipt Date: 20070430
  Transmission Date: 20071010
  Serious: Yes (Other)
  Sender: FDA-Public Use
  Company Number: US-GLAXOSMITHKLINE-A0649246A

PATIENT
  Age: 83 Year
  Sex: Female

DRUGS (7)
  1. AVANDARYL [Suspect]
     Dosage: 1TAB PER DAY
     Route: 048
     Dates: start: 20070128, end: 20070301
  2. LOTREL [Concomitant]
  3. NEXIUM [Concomitant]
  4. TRIAMTERENE [Concomitant]
  5. WARFARIN [Concomitant]
  6. SYNTHROID [Concomitant]
  7. ULTRAM [Concomitant]

REACTIONS (3)
  - BACK PAIN [None]
  - DRUG DISPENSING ERROR [None]
  - HYPOGLYCAEMIA [None]
